FAERS Safety Report 25443679 (Version 1)
Quarter: 2025Q2

REPORT INFORMATION
  Report Type: Spontaneous
  Country: US (occurrence: US)
  Receive Date: 20250617
  Receipt Date: 20250617
  Transmission Date: 20250716
  Serious: No
  Sender: GLENMARK
  Company Number: US-GLENMARK PHARMACEUTICALS-2024GMK095682

PATIENT

DRUGS (1)
  1. RYALTRIS [Suspect]
     Active Substance: MOMETASONE FUROATE MONOHYDRATE\OLOPATADINE HYDROCHLORIDE
     Indication: Seasonal allergy
     Route: 045
     Dates: start: 20240711, end: 20241115

REACTIONS (5)
  - Nasal polyps [Recovered/Resolved]
  - Parosmia [Recovered/Resolved]
  - Nasal ulcer [Recovered/Resolved]
  - Nasal discomfort [Recovered/Resolved]
  - Product use issue [Unknown]
